FAERS Safety Report 6567979-3 (Version None)
Quarter: 2010Q1

REPORT INFORMATION
  Report Type: 
  Country: None (occurrence: None)
  Receive Date: 20100102
  Receipt Date: 20091110
  Transmission Date: 20100710
  Serious: Yes (Life-Threatening, Hospitalization, Disabling, Other)
  Sender: FDA-Public Use
  Company Number: DSA_42037_2009

PATIENT
  Sex: Female
  Weight: 52.6173 kg

DRUGS (9)
  1. WELLBUTRIN XL [Suspect]
     Indication: BIPOLAR DISORDER
     Dosage: ORAL, 8 G 1X, ORAL
     Route: 048
  2. LAMOTRIGINE [Suspect]
     Indication: ATTENTION DEFICIT/HYPERACTIVITY DISORDER
     Dosage: 4 G 1X ORAL
     Route: 048
  3. LAMOTRIGINE [Suspect]
     Indication: BIPOLAR DISORDER
     Dosage: 4 G 1X ORAL
     Route: 048
  4. INTRALIPID /00272201/ (NOT SPECIFIED) [Suspect]
     Indication: DRUG USE FOR UNKNOWN INDICATION
     Dosage: 100 ML 1X  INTRAVENOUS BOLUS
     Route: 040
  5. CANNABIS [Concomitant]
  6. ETHANOL [Concomitant]
  7. BENZODIAZEPINES [Concomitant]
  8. AMPHETAMINE MEDICATION [Concomitant]
  9. TRANQUILIZER [Concomitant]

REACTIONS (28)
  - ACUTE RESPIRATORY DISTRESS SYNDROME [None]
  - ANOXIC ENCEPHALOPATHY [None]
  - APPARENT DEATH [None]
  - BLOOD ALCOHOL INCREASED [None]
  - BLOOD PRESSURE DECREASED [None]
  - BLOOD SODIUM DECREASED [None]
  - CARDIAC ARREST [None]
  - CEREBRAL DISORDER [None]
  - CIRCULATORY COLLAPSE [None]
  - COMA [None]
  - DRUG ABUSE [None]
  - ELECTROCARDIOGRAM QRS COMPLEX PROLONGED [None]
  - ELECTROCARDIOGRAM QT PROLONGED [None]
  - GRAND MAL CONVULSION [None]
  - LUNG CONSOLIDATION [None]
  - MULTIPLE DRUG OVERDOSE INTENTIONAL [None]
  - PINEAL GLAND CYST [None]
  - PLEURAL EFFUSION [None]
  - PNEUMONIA [None]
  - PULMONARY HAEMORRHAGE [None]
  - PULMONARY OEDEMA [None]
  - SEDATION [None]
  - SINUS TACHYCARDIA [None]
  - SUICIDE ATTEMPT [None]
  - TRAUMATIC LUNG INJURY [None]
  - UNRESPONSIVE TO STIMULI [None]
  - VENTRICULAR FIBRILLATION [None]
  - VENTRICULAR TACHYCARDIA [None]
